FAERS Safety Report 9260694 (Version 1)
Quarter: 2013Q2

REPORT INFORMATION
  Report Type: Report from Study
  Country: CA (occurrence: CA)
  Receive Date: 20130429
  Receipt Date: 20130429
  Transmission Date: 20140414
  Serious: Yes (Other)
  Sender: FDA-Public Use
  Company Number: CA-JNJFOC-20130412678

PATIENT
  Sex: Female
  Weight: 89 kg

DRUGS (4)
  1. REMICADE [Suspect]
     Indication: ANKYLOSING SPONDYLITIS
     Route: 042
     Dates: start: 2008
  2. DEMEROL [Concomitant]
     Route: 065
  3. TYLENOL 3 [Concomitant]
     Route: 065
  4. TOPICAL CREAMS [Concomitant]
     Route: 061

REACTIONS (1)
  - Fungal infection [Recovering/Resolving]
